FAERS Safety Report 8378993-X (Version None)
Quarter: 2012Q2

REPORT INFORMATION
  Report Type: 
  Country: None (occurrence: None)
  Receive Date: 20120522
  Receipt Date: 20120522
  Transmission Date: 20120825
  Serious: Yes (Life-Threatening, Hospitalization, Disabling, Other)
  Sender: FDA-Public Use
  Company Number: None

PATIENT
  Age: 58 Year
  Sex: Male
  Weight: 65.7716 kg

DRUGS (4)
  1. ABILIFY [Concomitant]
  2. CLOPAZIM [Suspect]
     Indication: BIPOLAR I DISORDER
     Dosage: 200MG MORNING
  3. COLOZERAL [Concomitant]
  4. DEPAKOTE [Suspect]
     Dosage: 200 M 300 E MORNING EVENING

REACTIONS (2)
  - BURNING SENSATION [None]
  - MANIA [None]
